FAERS Safety Report 20141441 (Version 2)
Quarter: 2022Q1

REPORT INFORMATION
  Report Type: Other
  Country: RU (occurrence: None)
  Receive Date: 20211202
  Receipt Date: 20220216
  Transmission Date: 20220424
  Serious: No
  Sender: FDA-Public Use
  Company Number: RU-ROCHE-2971699

PATIENT
  Age: 22 Year
  Sex: Female
  Weight: 63 kg

DRUGS (4)
  1. OCRELIZUMAB [Suspect]
     Active Substance: OCRELIZUMAB
     Indication: Primary progressive multiple sclerosis
     Route: 042
     Dates: start: 20201103
  2. CLOROPIRAMINA [Concomitant]
     Dosage: NO
     Dates: start: 20210528, end: 20210528
  3. METHYLPREDNISOLONE [Concomitant]
     Active Substance: METHYLPREDNISOLONE
     Dosage: NO
     Dates: start: 20210528, end: 20210528
  4. YAZ [Concomitant]
     Active Substance: DROSPIRENONE\ETHINYL ESTRADIOL
     Dosage: YES
     Route: 048
     Dates: start: 2017

REACTIONS (1)
  - COVID-19 [Recovered/Resolved]

NARRATIVE: CASE EVENT DATE: 20210626
